FAERS Safety Report 25074637 (Version 1)
Quarter: 2025Q1

REPORT INFORMATION
  Report Type: Other
  Country: DK (occurrence: DK)
  Receive Date: 20250313
  Receipt Date: 20250313
  Transmission Date: 20250408
  Serious: Yes (Hospitalization)
  Sender: WOODWARD PHARMA SERVICES
  Company Number: DK-WW-2025-06124

PATIENT
  Sex: Male

DRUGS (6)
  1. FLUCONAZOLE [Suspect]
     Active Substance: FLUCONAZOLE
     Indication: Cryptococcosis
  2. PREDNISONE [Concomitant]
     Active Substance: PREDNISONE
     Indication: Meningitis
     Route: 048
  3. METHYLPREDNISOLONE [Concomitant]
     Active Substance: METHYLPREDNISOLONE
     Route: 042
  4. AMPHOTERICIN B [Concomitant]
     Active Substance: AMPHOTERICIN B
     Indication: Cryptococcosis
     Route: 065
  5. FLUCYTOSINE [Concomitant]
     Active Substance: FLUCYTOSINE
     Indication: Cryptococcosis
     Route: 065
  6. BARICITINIB [Concomitant]
     Active Substance: BARICITINIB
     Route: 065

REACTIONS (1)
  - Drug ineffective [Fatal]
